FAERS Safety Report 16290062 (Version 1)
Quarter: 2019Q2

REPORT INFORMATION
  Report Type: Spontaneous
  Country: US (occurrence: US)
  Receive Date: 20190403
  Receipt Date: 20190403
  Transmission Date: 20190711
  Serious: Yes (Other)
  Sender: FDA-Public Use
  Company Number: None

PATIENT
  Age: 67 Year
  Sex: Female

DRUGS (20)
  1. DOXYCYCLINE. [Concomitant]
     Active Substance: DOXYCYCLINE
  2. METOCLOPRAMIDE. [Concomitant]
     Active Substance: METOCLOPRAMIDE
  3. ASPIRIN. [Concomitant]
     Active Substance: ASPIRIN
  4. FLUOCINONIDE. [Concomitant]
     Active Substance: FLUOCINONIDE
  5. OXYCODONE [Concomitant]
     Active Substance: OXYCODONE
  6. HYDROCHLOROTHIAZIDE. [Concomitant]
     Active Substance: HYDROCHLOROTHIAZIDE
  7. SILDENAFIL. [Concomitant]
     Active Substance: SILDENAFIL
  8. PANTOPRAZOLE [Concomitant]
     Active Substance: PANTOPRAZOLE
  9. DILTIAZEM. [Concomitant]
     Active Substance: DILTIAZEM
  10. NYSTATIN-TRIAMCINOLONE [Concomitant]
  11. SENNA LEAF EXTRACT [Concomitant]
  12. TRACLEER [Suspect]
     Active Substance: BOSENTAN
     Indication: PULMONARY ARTERIAL HYPERTENSION
     Route: 048
     Dates: start: 201710, end: 201902
  13. MVIA WITH VIT K [Concomitant]
  14. ONDANSETRON [Concomitant]
     Active Substance: ONDANSETRON
  15. DOCUSATE SODIUM. [Concomitant]
     Active Substance: DOCUSATE SODIUM
  16. KETOCONAZOLE. [Concomitant]
     Active Substance: KETOCONAZOLE
  17. CEPHALEXIN. [Concomitant]
     Active Substance: CEPHALEXIN
  18. BISACODYL. [Concomitant]
     Active Substance: BISACODYL
  19. BUSPIRONE [Concomitant]
     Active Substance: BUSPIRONE HYDROCHLORIDE
  20. BETAMETHASONE DIPROPIONATE. [Concomitant]
     Active Substance: BETAMETHASONE DIPROPIONATE

REACTIONS (2)
  - Off label use [None]
  - Peripheral swelling [None]

NARRATIVE: CASE EVENT DATE: 20190215
